FAERS Safety Report 9319554 (Version 1)
Quarter: 2013Q2

REPORT INFORMATION
  Report Type: Spontaneous
  Country: US (occurrence: None)
  Receive Date: 20130529
  Receipt Date: 20130529
  Transmission Date: 20140414
  Serious: Yes (Other)
  Sender: FDA-Public Use
  Company Number: None

PATIENT
  Age: 84 Year
  Sex: Male
  Weight: 81.65 kg

DRUGS (1)
  1. HEPARIN [Suspect]

REACTIONS (9)
  - Nausea [None]
  - Fatigue [None]
  - Feeling cold [None]
  - Somnolence [None]
  - Vomiting [None]
  - Pyrexia [None]
  - Hypotension [None]
  - Pneumonia [None]
  - Medication error [None]
